FAERS Safety Report 5383967-7 (Version None)
Quarter: 2007Q3

REPORT INFORMATION
  Report Type: 
  Country: None (occurrence: None)
  Receive Date: 20070711
  Receipt Date: 20070702
  Transmission Date: 20080115
  Serious: Yes (Other)
  Sender: FDA-Public Use
  Company Number: US-JNJFOC-20070500617

PATIENT
  Sex: Female

DRUGS (7)
  1. TOPAMAX [Suspect]
     Indication: EPILEPSY
     Route: 048
  2. CHANTIX [Interacting]
  3. CHANTIX [Interacting]
     Indication: SMOKING CESSATION THERAPY
  4. NEXIUM [Concomitant]
     Route: 048
  5. PREMARIN [Concomitant]
     Route: 048
  6. CYMBALTA [Concomitant]
     Route: 048
  7. METHADONE HCL [Concomitant]

REACTIONS (2)
  - CONVULSION [None]
  - DRUG INTERACTION [None]
